FAERS Safety Report 22386104 (Version 1)
Quarter: 2023Q2

REPORT INFORMATION
  Report Type: Spontaneous
  Country: FR (occurrence: FR)
  Receive Date: 20230530
  Receipt Date: 20230530
  Transmission Date: 20230722
  Serious: Yes (Other)
  Sender: FDA-Public Use
  Company Number: FR-FreseniusKabi-FK202307449

PATIENT
  Age: 73 Year
  Sex: Male

DRUGS (4)
  1. LEVOFLOXACIN [Suspect]
     Active Substance: LEVOFLOXACIN
     Indication: Staphylococcal bacteraemia
  2. LEVOFLOXACIN [Suspect]
     Active Substance: LEVOFLOXACIN
     Indication: Sacroiliitis
  3. CLOXACILLIN [Suspect]
     Active Substance: CLOXACILLIN
     Indication: Staphylococcal bacteraemia
  4. CLOXACILLIN [Suspect]
     Active Substance: CLOXACILLIN
     Indication: Sacroiliitis

REACTIONS (2)
  - Drug reaction with eosinophilia and systemic symptoms [Recovering/Resolving]
  - Duodenal stenosis [Recovering/Resolving]
